FAERS Safety Report 9369073 (Version 1)
Quarter: 2013Q2

REPORT INFORMATION
  Report Type: Report from Study
  Country: AR (occurrence: AR)
  Receive Date: 20130626
  Receipt Date: 20130626
  Transmission Date: 20140414
  Serious: Yes (Other)
  Sender: FDA-Public Use
  Company Number: PHHY2013AR065016

PATIENT
  Age: 84 Year
  Sex: Male

DRUGS (1)
  1. ONBREZ [Suspect]

REACTIONS (2)
  - Haemorrhage [Unknown]
  - Blood pressure increased [Unknown]
